FAERS Safety Report 8218648-5 (Version None)
Quarter: 2012Q1

REPORT INFORMATION
  Report Type: 
  Country: None (occurrence: None)
  Receive Date: 20120319
  Receipt Date: 20120312
  Transmission Date: 20120608
  Serious: Yes (Other)
  Sender: FDA-Public Use
  Company Number: PHEH2012US005636

PATIENT
  Sex: Female

DRUGS (13)
  1. DIOVAN [Suspect]
     Dosage: 160 MG, PER DAY
     Dates: end: 20120305
  2. LEVOTHROID [Concomitant]
  3. ASPIRIN [Concomitant]
  4. TEKTURNA [Suspect]
     Dosage: 3 DF (150), PER DAY
     Dates: start: 20120305
  5. LOZOL [Concomitant]
  6. POTASSIUM CHLORIDE [Concomitant]
  7. LEXAPRO [Concomitant]
  8. ALLOPURINOL [Concomitant]
  9. LASEX [Concomitant]
  10. VICTOZA [Concomitant]
  11. APIDRA [Concomitant]
  12. LANTUS [Concomitant]
  13. PRILOSEC [Concomitant]

REACTIONS (9)
  - DIARRHOEA [None]
  - BLOOD CREATININE INCREASED [None]
  - MOUTH INJURY [None]
  - HEADACHE [None]
  - DIZZINESS [None]
  - FALL [None]
  - TOOTH FRACTURE [None]
  - MYALGIA [None]
  - INFLUENZA LIKE ILLNESS [None]
